FAERS Safety Report 15017296 (Version 2)
Quarter: 2018Q2

REPORT INFORMATION
  Report Type: Spontaneous
  Country: UA (occurrence: UA)
  Receive Date: 20180615
  Receipt Date: 20180622
  Transmission Date: 20180711
  Serious: Yes (Death)
  Sender: FDA-Public Use
  Company Number: UA-ASTRAZENECA-2018SE76092

PATIENT
  Age: 47 Year
  Sex: Male

DRUGS (22)
  1. CRESTOR [Suspect]
     Active Substance: ROSUVASTATIN CALCIUM
     Dosage: 40.0MG UNKNOWN
     Route: 048
  2. BRILINTA [Suspect]
     Active Substance: TICAGRELOR
     Route: 048
  3. DOPAMINE [Concomitant]
     Active Substance: DOPAMINE\DOPAMINE HYDROCHLORIDE
  4. HYPOTHIAZIDE [Concomitant]
     Active Substance: HYDROCHLOROTHIAZIDE
  5. PANTOPRAZOLE [Concomitant]
     Active Substance: PANTOPRAZOLE
  6. COLOMYCIN [Concomitant]
     Active Substance: COLISTIN
     Indication: ANTIBIOTIC THERAPY
     Dosage: 2 MILLION UNITS 3 TIMES A DAY
     Route: 042
     Dates: start: 20180512, end: 20180517
  7. HEPARIN [Concomitant]
     Active Substance: HEPARIN SODIUM
  8. CAPTOPRIL. [Concomitant]
     Active Substance: CAPTOPRIL
  9. VANCOMYCIN [Concomitant]
     Active Substance: VANCOMYCIN
     Indication: ANTIBIOTIC THERAPY
     Dosage: 1G 2 TIMES A DAY
     Route: 042
     Dates: start: 20180510, end: 20180516
  10. CEFSULODIN. [Concomitant]
     Active Substance: CEFSULODIN
     Indication: ANTIBIOTIC THERAPY
     Dosage: 2G 2 TIMES A DAY
     Route: 042
     Dates: start: 20180509, end: 20180511
  11. METOCLOPRAMIDE. [Concomitant]
     Active Substance: METOCLOPRAMIDE
  12. DEXTROSE. [Concomitant]
     Active Substance: DEXTROSE
  13. AMIKACIN. [Concomitant]
     Active Substance: AMIKACIN
     Indication: ANTIBIOTIC THERAPY
     Dosage: 1G PER DAY
     Route: 042
     Dates: start: 20180509, end: 20180516
  14. MERONEM [Concomitant]
     Active Substance: MEROPENEM
     Indication: ANTIBIOTIC THERAPY
     Dosage: 1 G 3 TIMES A DAY
     Route: 042
     Dates: start: 20180512, end: 20180517
  15. DOBUTAMINE [Concomitant]
     Active Substance: DOBUTAMINE\DOBUTAMINE HYDROCHLORIDE
  16. NORADRENALINE [Concomitant]
     Active Substance: NOREPINEPHRINE
  17. FUROSEMIDE. [Concomitant]
     Active Substance: FUROSEMIDE
  18. ACETYLSALICYLIC ACID [Suspect]
     Active Substance: ASPIRIN
     Dosage: 100.0MG UNKNOWN
     Route: 065
  19. NITROGLYCERIN. [Concomitant]
     Active Substance: NITROGLYCERIN
  20. SPIRONOLACTONE. [Concomitant]
     Active Substance: SPIRONOLACTONE
  21. BISOPROLOL [Concomitant]
     Active Substance: BISOPROLOL
  22. FLUCONAZOLE. [Concomitant]
     Active Substance: FLUCONAZOLE
     Indication: ANTIBIOTIC THERAPY
     Dosage: 200 MG ONCE A DAY
     Route: 042
     Dates: start: 20180512, end: 20180517

REACTIONS (1)
  - Vascular stent thrombosis [Fatal]
